FAERS Safety Report 9171647 (Version 1)
Quarter: 2013Q1

REPORT INFORMATION
  Report Type: Spontaneous
  Country: US (occurrence: None)
  Receive Date: 20130201
  Receipt Date: 20130201
  Transmission Date: 20140127
  Serious: Yes (Hospitalization)
  Sender: FDA-Public Use
  Company Number: 2013034555

PATIENT
  Age: 9 Year
  Sex: Male

DRUGS (1)
  1. IMMUNOGLOBULIN HUMAN NORMAL [Suspect]
     Dosage: 6G 1X/WEEK, 2 GRAMS SUBCUTANEOUS
     Route: 058
     Dates: start: 20121220, end: 20121220

REACTIONS (5)
  - Malaise [None]
  - Infusion site pain [None]
  - Sinus congestion [None]
  - Abdominal pain upper [None]
  - Ear infection [None]
